FAERS Safety Report 23950480 (Version 1)
Quarter: 2024Q2

REPORT INFORMATION
  Report Type: Spontaneous
  Country: US (occurrence: US)
  Receive Date: 20240607
  Receipt Date: 20240607
  Transmission Date: 20240715
  Serious: No
  Sender: FDA-Public Use
  Company Number: US-TORRENT-00013594

PATIENT
  Age: 74 Year
  Sex: Female

DRUGS (1)
  1. ISOSORBIDE MONONITRATE [Suspect]
     Active Substance: ISOSORBIDE MONONITRATE
     Indication: Product used for unknown indication
     Dosage: UNKNOWN
     Route: 065

REACTIONS (5)
  - Anaemia [Unknown]
  - Contusion [Unknown]
  - Rash [Unknown]
  - Collagen disorder [Unknown]
  - Epinephrine increased [Unknown]
